FAERS Safety Report 11434487 (Version 1)
Quarter: 2015Q3

REPORT INFORMATION
  Report Type: Spontaneous
  Country: US (occurrence: None)
  Receive Date: 20150828
  Receipt Date: 20150828
  Transmission Date: 20151125
  Serious: No
  Sender: FDA-Public Use
  Company Number: None

PATIENT
  Age: 40 Year
  Sex: Female
  Weight: 118.2 kg

DRUGS (1)
  1. SSKI [Suspect]
     Active Substance: POTASSIUM IODIDE
     Indication: ERYTHEMA NODOSUM
     Dosage: 5-10 DROPS  3 TIMES DAILY  ORAL
     Route: 048
     Dates: start: 20150728

REACTIONS (4)
  - Throat tightness [None]
  - Throat irritation [None]
  - Pruritus [None]
  - Burning sensation [None]

NARRATIVE: CASE EVENT DATE: 20150731
